FAERS Safety Report 17790612 (Version 1)
Quarter: 2020Q2

REPORT INFORMATION
  Report Type: Spontaneous
  Country: FR (occurrence: FR)
  Receive Date: 20200514
  Receipt Date: 20200514
  Transmission Date: 20200714
  Serious: Yes (Hospitalization)
  Sender: FDA-Public Use
  Company Number: FR-ASTRAZENECA-2020SE62620

PATIENT
  Age: 69 Year
  Sex: Female

DRUGS (11)
  1. DOLIPRANE [Concomitant]
     Active Substance: ACETAMINOPHEN
  2. SPASFON [PHLOROGLUCINOL;TRIMETHYLPHLOROGLUCINOL] [Concomitant]
     Active Substance: PHLOROGLUCINOL\1,3,5-TRIMETHOXYBENZENE
  3. LEVOTHYROX [Concomitant]
     Active Substance: LEVOTHYROXINE
  4. FASLODEX [Suspect]
     Active Substance: FULVESTRANT
     Indication: BREAST CANCER
     Dosage: UNKNOWN
     Route: 030
     Dates: start: 20200304
  5. ARANESP [Concomitant]
     Active Substance: DARBEPOETIN ALFA
  6. KARDEGIC [Concomitant]
     Active Substance: ASPIRIN DL-LYSINE
  7. INIPOMP [Concomitant]
     Active Substance: PANTOPRAZOLE SODIUM
  8. DEDROGYL [Concomitant]
     Active Substance: CALCIFEDIOL
  9. SERESTA [Concomitant]
     Active Substance: OXAZEPAM
  10. COUMADINE [Concomitant]
     Active Substance: WARFARIN SODIUM
  11. MOVICOL [Concomitant]
     Active Substance: POLYETHYLENE GLYCOL 3350\POTASSIUM CHLORIDE\SODIUM BICARBONATE\SODIUM CHLORIDE

REACTIONS (3)
  - Abdominal pain [Recovered/Resolved]
  - Faecal vomiting [Recovered/Resolved]
  - Diarrhoea [Recovered/Resolved]

NARRATIVE: CASE EVENT DATE: 20200412
